FAERS Safety Report 9671314 (Version 1)
Quarter: 2013Q4

REPORT INFORMATION
  Report Type: Spontaneous
  Country: US (occurrence: US)
  Receive Date: 20131106
  Receipt Date: 20131106
  Transmission Date: 20140711
  Serious: Yes (Other)
  Sender: FDA-Public Use
  Company Number: PHHY2013US124793

PATIENT
  Age: 41 Year
  Sex: Female

DRUGS (9)
  1. BACLOFEN INTRATHECAL [Suspect]
     Indication: MUSCLE SPASTICITY
     Dosage: 50 UG, UNK
  2. BACLOFEN INTRATHECAL [Suspect]
     Dosage: 717 UG, PER DAY
  3. BACLOFEN INTRATHECAL [Suspect]
     Dosage: 824.2 MG, PER DAY
  4. BACLOFEN INTRATHECAL [Suspect]
     Dosage: 947.9 UG, PER DAY
  5. BACLOFEN [Suspect]
     Indication: MUSCLE SPASTICITY
     Dosage: 10 MG, TID
     Route: 048
  6. BACLOFEN [Suspect]
     Dosage: 20 MG, TID
  7. BACLOFEN [Suspect]
     Dosage: 30 MG, TID
  8. TIZANIDINE [Suspect]
     Dosage: 2 MG, QID
  9. TIZANIDINE [Suspect]

REACTIONS (6)
  - Meningitis [Unknown]
  - Muscle spasticity [Recovering/Resolving]
  - Drug withdrawal syndrome [Unknown]
  - Pruritus [Unknown]
  - No therapeutic response [Unknown]
  - Therapeutic response decreased [Unknown]
